FAERS Safety Report 12400613 (Version 2)
Quarter: 2016Q2

REPORT INFORMATION
  Report Type: Spontaneous
  Country: US (occurrence: US)
  Receive Date: 20160525
  Receipt Date: 20160525
  Transmission Date: 20160815
  Serious: No
  Sender: FDA-Public Use
  Company Number: US-SA-2015SA160334

PATIENT
  Age: 73 Year
  Sex: Male

DRUGS (2)
  1. SOLOSTAR [Concomitant]
     Active Substance: DEVICE
  2. LANTUS SOLOSTAR [Suspect]
     Active Substance: INSULIN GLARGINE
     Indication: TYPE 2 DIABETES MELLITUS
     Dosage: PATIENT IS ON INSULIN FOR YEARS DOSE:35 UNIT(S)
     Route: 065

REACTIONS (4)
  - Dysphemia [Unknown]
  - Drug administration error [Unknown]
  - Nerve injury [Unknown]
  - Memory impairment [Unknown]
